FAERS Safety Report 16258018 (Version 2)
Quarter: 2019Q2

REPORT INFORMATION
  Report Type: Spontaneous
  Country: US (occurrence: US)
  Receive Date: 20190430
  Receipt Date: 20190611
  Transmission Date: 20190711
  Serious: No
  Sender: FDA-Public Use
  Company Number: US-BRISTOL-MYERS SQUIBB COMPANY-BMS-2019-042554

PATIENT
  Age: 74 Year
  Sex: Female

DRUGS (1)
  1. OPDIVO [Suspect]
     Active Substance: NIVOLUMAB
     Indication: SMALL CELL LUNG CANCER
     Dosage: 240 MILLIGRAM, Q2WK
     Route: 042
     Dates: start: 20190329

REACTIONS (11)
  - Asthma [Unknown]
  - Pruritus [Unknown]
  - Swelling face [Unknown]
  - Sensation of foreign body [Unknown]
  - Rash [Unknown]
  - Skin reaction [Unknown]
  - Peripheral swelling [Unknown]
  - Lip swelling [Unknown]
  - Swollen tongue [Unknown]
  - Upper respiratory tract infection [Recovering/Resolving]
  - Erythema [Unknown]

NARRATIVE: CASE EVENT DATE: 20190401
